FAERS Safety Report 11840587 (Version 1)
Quarter: 2015Q4

REPORT INFORMATION
  Report Type: Spontaneous
  Country: US (occurrence: None)
  Receive Date: 20151215
  Receipt Date: 20151215
  Transmission Date: 20160305
  Serious: Yes (Hospitalization, Other)
  Sender: FDA-Public Use
  Company Number: None

PATIENT
  Age: 73 Year
  Sex: Female
  Weight: 71.67 kg

DRUGS (16)
  1. VITAMIN B [Concomitant]
     Active Substance: VITAMIN B
  2. CENTRUM SILVER [Concomitant]
     Active Substance: MINERALS\VITAMINS
  3. TRAZODONE [Concomitant]
     Active Substance: TRAZODONE HYDROCHLORIDE
  4. CALCIUM CITRATE + D3 [Concomitant]
  5. VALTREX [Suspect]
     Active Substance: VALACYCLOVIR HYDROCHLORIDE
     Indication: LASER THERAPY
     Dosage: 1000 MG BID 2 PILLS 1000MG TWICE DAILY BY MOUTH
     Route: 048
  6. VITAMIN D3 [Concomitant]
     Active Substance: CHOLECALCIFEROL
  7. NEXIUM [Concomitant]
     Active Substance: ESOMEPRAZOLE MAGNESIUM
  8. VITAMIN E [Concomitant]
     Active Substance: .ALPHA.-TOCOPHEROL
  9. DIOVAN [Concomitant]
     Active Substance: VALSARTAN
  10. CLONAZEPAM. [Concomitant]
     Active Substance: CLONAZEPAM
  11. LEXAPRO [Concomitant]
     Active Substance: ESCITALOPRAM OXALATE
  12. CALCIUM [Concomitant]
     Active Substance: CALCIUM
  13. VALTREX [Suspect]
     Active Substance: VALACYCLOVIR HYDROCHLORIDE
     Indication: PAIN
     Dosage: 1000 MG BID 2 PILLS 1000MG TWICE DAILY BY MOUTH
     Route: 048
  14. TRIPILIX [Concomitant]
  15. SYNTHROID [Concomitant]
     Active Substance: LEVOTHYROXINE SODIUM
  16. VITAMIN D [Concomitant]
     Active Substance: CHOLECALCIFEROL

REACTIONS (3)
  - Inhibitory drug interaction [None]
  - Panic attack [None]
  - Drug ineffective [None]
